FAERS Safety Report 23626492 (Version 7)
Quarter: 2025Q2

REPORT INFORMATION
  Report Type: Spontaneous
  Country: JP (occurrence: JP)
  Receive Date: 20240313
  Receipt Date: 20250504
  Transmission Date: 20250716
  Serious: Yes (Other)
  Sender: BRISTOL-MYERS SQUIBB COMPANY
  Company Number: JP-ONO-2024JP005323

PATIENT
  Age: 85 Year
  Sex: Female

DRUGS (5)
  1. OPDIVO [Suspect]
     Active Substance: NIVOLUMAB
     Indication: Metastatic renal cell carcinoma
     Route: 041
     Dates: start: 20230307, end: 20240205
  2. OPDIVO [Suspect]
     Active Substance: NIVOLUMAB
     Route: 041
     Dates: start: 20240409
  3. CABOZANTINIB S-MALATE [Concomitant]
     Active Substance: CABOZANTINIB S-MALATE
     Indication: Metastatic renal cell carcinoma
     Dates: start: 20230307
  4. NEXIUM [Concomitant]
     Active Substance: ESOMEPRAZOLE MAGNESIUM
     Indication: Product used for unknown indication
     Route: 048
  5. RACOL [NUTRIENTS NOS] [Concomitant]
     Indication: Product used for unknown indication
     Route: 048

REACTIONS (4)
  - Small intestinal perforation [Recovering/Resolving]
  - Small intestine carcinoma [Unknown]
  - Metastases to peritoneum [Unknown]
  - Peritonitis [Unknown]

NARRATIVE: CASE EVENT DATE: 20240209
